FAERS Safety Report 10742620 (Version 1)
Quarter: 2015Q1

REPORT INFORMATION
  Report Type: Spontaneous
  Country: CN (occurrence: CN)
  Receive Date: 20150127
  Receipt Date: 20150127
  Transmission Date: 20150721
  Serious: Yes (Other)
  Sender: FDA-Public Use
  Company Number: CN-ELI_LILLY_AND_COMPANY-CN201501005581

PATIENT
  Age: 83 Year
  Sex: Female
  Weight: 53.5 kg

DRUGS (5)
  1. EFFEXOR [Suspect]
     Active Substance: VENLAFAXINE HYDROCHLORIDE
     Indication: MAJOR DEPRESSION
     Dosage: 150 MG, QD
     Route: 048
     Dates: start: 20140402, end: 20140426
  2. CLONAZEPAM. [Suspect]
     Active Substance: CLONAZEPAM
     Indication: MAJOR DEPRESSION
     Dosage: 0.5 MG, QD
     Route: 048
     Dates: start: 20140402, end: 20140426
  3. MADOPAR [Suspect]
     Active Substance: BENSERAZIDE HYDROCHLORIDE\LEVODOPA
     Indication: MAJOR DEPRESSION
     Dosage: 0.125 G, TID
     Route: 048
     Dates: start: 20140402, end: 20140426
  4. ZYPREXA [Suspect]
     Active Substance: OLANZAPINE
     Indication: MAJOR DEPRESSION
     Dosage: 2.5 MG, QD
     Route: 048
     Dates: start: 20140402, end: 20140426
  5. VALPROATE MAGNESIUM [Suspect]
     Active Substance: VALPROATE MAGNESIUM
     Indication: MAJOR DEPRESSION
     Dosage: 0.25 G, QD
     Route: 048
     Dates: start: 20140402, end: 20140426

REACTIONS (14)
  - Fibrin degradation products increased [Unknown]
  - Bilirubin conjugated increased [Unknown]
  - Blood lactate dehydrogenase increased [Recovered/Resolved]
  - Off label use [Unknown]
  - Blood bilirubin increased [Unknown]
  - Aspartate aminotransferase increased [Recovered/Resolved]
  - Activated partial thromboplastin time prolonged [Unknown]
  - Prothrombin time prolonged [Unknown]
  - International normalised ratio increased [Unknown]
  - Blood fibrinogen increased [Unknown]
  - Fibrin D dimer increased [Unknown]
  - Gamma-glutamyltransferase increased [Recovering/Resolving]
  - Blood alkaline phosphatase increased [Recovered/Resolved]
  - Alanine aminotransferase increased [Recovered/Resolved]

NARRATIVE: CASE EVENT DATE: 20140426
